FAERS Safety Report 5211531-9 (Version None)
Quarter: 2007Q1

REPORT INFORMATION
  Report Type: 
  Country: None (occurrence: None)
  Receive Date: 20070117
  Receipt Date: 20070108
  Transmission Date: 20070707
  Serious: Yes (Hospitalization)
  Sender: FDA-Public Use
  Company Number: FR-ABBOTT-06P-056-0352243-00

PATIENT
  Age: 62 Year
  Sex: Female
  Weight: 70 kg

DRUGS (5)
  1. HUMIRA [Suspect]
     Indication: POLYARTHRITIS
     Route: 058
     Dates: end: 20061006
  2. LEFLUNOMIDE [Suspect]
     Indication: POLYARTHRITIS
     Route: 048
     Dates: end: 20061013
  3. PREDNISONE TAB [Concomitant]
     Indication: SELF-MEDICATION
     Route: 048
  4. PREDNISONE TAB [Concomitant]
  5. ETANERCEPT [Concomitant]
     Indication: POLYARTHRITIS
     Route: 058
     Dates: start: 20061006, end: 20061013

REACTIONS (5)
  - ARTHRITIS BACTERIAL [None]
  - INFLAMMATION [None]
  - MUSCULOSKELETAL PAIN [None]
  - MYOSITIS [None]
  - STAPHYLOCOCCAL SEPSIS [None]
